FAERS Safety Report 23111743 (Version 1)
Quarter: 2023Q4

REPORT INFORMATION
  Report Type: Spontaneous
  Country: US (occurrence: US)
  Receive Date: 20231026
  Receipt Date: 20231026
  Transmission Date: 20240110
  Serious: Yes (Life-Threatening, Hospitalization, Other)
  Sender: FDA-Public Use
  Company Number: US-FreseniusKabi-FK202317082

PATIENT
  Age: 45 Year
  Sex: Male

DRUGS (3)
  1. FENTANYL [Suspect]
     Active Substance: FENTANYL\FENTANYL CITRATE
     Indication: Sedation
     Dosage: 220MCG/HR
  2. PROPOFOL [Concomitant]
     Active Substance: PROPOFOL
     Indication: Sedation
  3. MIDAZOLAM [Concomitant]
     Active Substance: MIDAZOLAM
     Indication: Sedation

REACTIONS (3)
  - Hypoxia [Recovering/Resolving]
  - Hypoventilation [Recovering/Resolving]
  - Muscle rigidity [Recovering/Resolving]
